FAERS Safety Report 16787356 (Version 3)
Quarter: 2019Q3

REPORT INFORMATION
  Report Type: Report from Study
  Country: US (occurrence: US)
  Receive Date: 20190909
  Receipt Date: 20190923
  Transmission Date: 20191005
  Serious: Yes (Hospitalization)
  Sender: FDA-Public Use
  Company Number: US-ACTELION-A-NJ2019-187776

PATIENT
  Sex: Female
  Weight: 97.96 kg

DRUGS (5)
  1. ORENITRAM [Concomitant]
     Active Substance: TREPROSTINIL
     Dosage: 10.75 MG, TID
     Route: 065
  2. REMODULIN [Concomitant]
     Active Substance: TREPROSTINIL
     Route: 042
  3. ELIQUIS [Concomitant]
     Active Substance: APIXABAN
  4. ORENITRAM [Concomitant]
     Active Substance: TREPROSTINIL
     Dosage: 11 MG, TID
     Route: 065
  5. OPSUMIT [Suspect]
     Active Substance: MACITENTAN
     Indication: PULMONARY ARTERIAL HYPERTENSION
     Dosage: 10 MG, QD
     Route: 048

REACTIONS (6)
  - Therapy change [Recovered/Resolved]
  - Pulmonary arterial hypertension [Recovered/Resolved]
  - Diarrhoea [Unknown]
  - Disease progression [Recovered/Resolved]
  - Headache [Unknown]
  - Drug intolerance [Unknown]
